FAERS Safety Report 8433488-X (Version None)
Quarter: 2012Q2

REPORT INFORMATION
  Report Type: 
  Country: None (occurrence: None)
  Receive Date: 20120613
  Receipt Date: 20120530
  Transmission Date: 20120825
  Serious: No
  Sender: FDA-Public Use
  Company Number: US-ASTRAZENECA-2012SE35778

PATIENT
  Age: 37 Year
  Sex: Male
  Weight: 124.7 kg

DRUGS (17)
  1. SIMVASTATIN [Concomitant]
  2. LOPID [Concomitant]
  3. METFORMIN HCL [Concomitant]
  4. VITAMIN B-12 [Concomitant]
  5. MULTI-VITAMIN [Concomitant]
  6. DEPAKOTE [Concomitant]
  7. VIT D3 [Concomitant]
  8. FELODIPINE [Concomitant]
  9. SUSTENNA INVEGA [Concomitant]
  10. LORAZEPAM [Concomitant]
  11. LISINOPRIL AND HYDROCHLOROTHIAZIDE [Concomitant]
  12. GLIPAZIDE [Concomitant]
  13. SEROQUEL XR [Suspect]
     Indication: BIPOLAR I DISORDER
     Dosage: SEROQUEL XR 300MG ALONG WITH SEROQUEL GENERIC 300MG
     Route: 048
     Dates: start: 20120523
  14. SEROQUEL XR [Suspect]
     Dosage: GENERIC, 300 MG
     Route: 048
  15. SEROQUEL XR [Suspect]
     Route: 048
  16. FISHOIL [Concomitant]
  17. BENADRYL MELATONIN [Concomitant]

REACTIONS (4)
  - CONDITION AGGRAVATED [None]
  - DISORIENTATION [None]
  - DELUSIONAL DISORDER, UNSPECIFIED TYPE [None]
  - PSYCHOTIC DISORDER [None]
